FAERS Safety Report 7384901-0 (Version None)
Quarter: 2011Q1

REPORT INFORMATION
  Report Type: 
  Country: None (occurrence: None)
  Receive Date: 20110330
  Receipt Date: 20110214
  Transmission Date: 20110831
  Serious: Yes (Hospitalization)
  Sender: FDA-Public Use
  Company Number: JP-BAYER-201013846BYL

PATIENT
  Age: 38 Year
  Sex: Female

DRUGS (4)
  1. PREDONINE [Concomitant]
     Indication: SYSTEMIC LUPUS ERYTHEMATOSUS
     Dosage: 30 MG (DAILY DOSE), , ORAL
     Route: 048
     Dates: start: 20100101, end: 20100615
  2. PREDONINE [Concomitant]
     Dosage: 20 MG (DAILY DOSE), , ORAL
     Route: 048
     Dates: start: 20100101, end: 20100101
  3. PREDONINE [Concomitant]
     Dosage: 30 MG (DAILY DOSE), , ORAL
     Route: 048
     Dates: start: 20100730
  4. ASPIRIN [Suspect]
     Indication: HYPOAESTHESIA
     Dosage: 100 MG (DAILY DOSE), QD, ORAL
     Route: 048
     Dates: start: 20100718, end: 20100728

REACTIONS (2)
  - THROMBOCYTOPENIA [None]
  - LEUKOPENIA [None]
